FAERS Safety Report 11571589 (Version 1)
Quarter: 2015Q3

REPORT INFORMATION
  Report Type: Spontaneous
  Country: US (occurrence: US)
  Receive Date: 20150929
  Receipt Date: 20150929
  Transmission Date: 20151125
  Serious: No
  Sender: FDA-Public Use
  Company Number: US-SA-2015SA107171

PATIENT
  Age: 64 Year
  Sex: Female

DRUGS (1)
  1. AUBAGIO [Suspect]
     Active Substance: TERIFLUNOMIDE
     Indication: MULTIPLE SCLEROSIS
     Dosage: NDC UNIQUE ID- 58468021002
     Route: 048
     Dates: start: 201411, end: 20150708

REACTIONS (3)
  - Arthralgia [Unknown]
  - Alopecia [Unknown]
  - Hypertension [Unknown]

NARRATIVE: CASE EVENT DATE: 20150701
